FAERS Safety Report 18041143 (Version 1)
Quarter: 2020Q3

REPORT INFORMATION
  Report Type: Spontaneous
  Country: FR (occurrence: FR)
  Receive Date: 20200718
  Receipt Date: 20200718
  Transmission Date: 20201103
  Serious: Yes (Life-Threatening)
  Sender: FDA-Public Use
  Company Number: NVSC2020FR201068

PATIENT
  Age: 6 Month
  Sex: Male

DRUGS (1)
  1. IOPIDINE [Suspect]
     Active Substance: APRACLONIDINE HYDROCHLORIDE
     Indication: OPHTHALMOLOGICAL EXAMINATION
     Dosage: 2 GTT (DANS CHAQUE OEIL)
     Route: 047
     Dates: start: 20200618, end: 20200618

REACTIONS (5)
  - Hypotonia [Recovered/Resolved]
  - Mydriasis [Recovered/Resolved]
  - Accidental overdose [Recovered/Resolved]
  - Hypothermia [Recovered/Resolved]
  - Somnolence [Recovered/Resolved]

NARRATIVE: CASE EVENT DATE: 20200618
